FAERS Safety Report 21836520 (Version 1)
Quarter: 2023Q1

REPORT INFORMATION
  Report Type: Spontaneous
  Country: DE (occurrence: DE)
  Receive Date: 20230109
  Receipt Date: 20230109
  Transmission Date: 20230418
  Serious: No
  Sender: FDA-Public Use
  Company Number: DE-ALKEM LABORATORIES LIMITED-DE-ALKEM-2022-12709

PATIENT
  Age: 22 Year
  Weight: 57 kg

DRUGS (1)
  1. IBUPROFEN [Suspect]
     Active Substance: IBUPROFEN
     Indication: Product used for unknown indication
     Dosage: UNK, 400 (FILM-COATED TABLET)
     Route: 065
     Dates: start: 20221021, end: 20221021

REACTIONS (3)
  - Somnolence [Unknown]
  - Dizziness [Unknown]
  - Delusion [Unknown]

NARRATIVE: CASE EVENT DATE: 20221021
